FAERS Safety Report 18739991 (Version 1)
Quarter: 2021Q1

REPORT INFORMATION
  Report Type: Spontaneous
  Country: US (occurrence: US)
  Receive Date: 20210113
  Receipt Date: 20210113
  Transmission Date: 20210419
  Serious: Yes (Hospitalization)
  Sender: FDA-Public Use
  Company Number: None

PATIENT
  Age: 63 Year
  Sex: Female

DRUGS (1)
  1. ORENCIA [Suspect]
     Active Substance: ABATACEPT
     Indication: RHEUMATOID ARTHRITIS
     Dosage: 1 SYR QWK SQ
     Route: 058
     Dates: start: 20200418

REACTIONS (2)
  - Therapy interrupted [None]
  - Knee operation [None]

NARRATIVE: CASE EVENT DATE: 20201114
